FAERS Safety Report 8437166-2 (Version None)
Quarter: 2012Q2

REPORT INFORMATION
  Report Type: 
  Country: None (occurrence: None)
  Receive Date: 20120614
  Receipt Date: 20120301
  Transmission Date: 20120825
  Serious: No
  Sender: FDA-Public Use
  Company Number: US-AMGEN-USASP2012031090

PATIENT
  Sex: Female

DRUGS (6)
  1. VENLAFAXINE HCL [Concomitant]
  2. SYNTHROID [Concomitant]
  3. AMLODIPINE [Concomitant]
     Dosage: UNK
  4. PROLIA [Suspect]
     Indication: OSTEOPOROSIS POSTMENOPAUSAL
     Dosage: 60 MG, Q6MO
     Dates: start: 20120201
  5. LOSARTAN POTASSIUM [Concomitant]
  6. SINGULAIR [Concomitant]

REACTIONS (3)
  - TONGUE ULCERATION [None]
  - HERPES VIRUS INFECTION [None]
  - GLOSSITIS [None]
